FAERS Safety Report 11230695 (Version 8)
Quarter: 2015Q4

REPORT INFORMATION
  Report Type: Spontaneous
  Country: US (occurrence: US)
  Receive Date: 20150701
  Receipt Date: 20151223
  Transmission Date: 20160304
  Serious: Yes (Other)
  Sender: FDA-Public Use
  Company Number: US-PFIZER INC-2015214142

PATIENT
  Age: 49 Year
  Sex: Female
  Weight: 72.56 kg

DRUGS (7)
  1. LYRICA [Suspect]
     Active Substance: PREGABALIN
     Indication: FIBROMYALGIA
     Dosage: 300 MG, 2X/DAY
     Route: 048
     Dates: start: 2007, end: 201507
  2. LYRICA [Suspect]
     Active Substance: PREGABALIN
     Indication: PAIN
     Dosage: UNK
     Route: 048
  3. LYRICA [Suspect]
     Active Substance: PREGABALIN
     Indication: GAIT DISTURBANCE
     Dosage: 300 MG, 2X/DAY
     Dates: start: 20150303, end: 20150402
  4. PLAVIX [Concomitant]
     Active Substance: CLOPIDOGREL BISULFATE
     Indication: CARDIAC DISORDER
     Dosage: UNK
  5. LYRICA [Suspect]
     Active Substance: PREGABALIN
     Indication: NEURALGIA
  6. LYRICA [Suspect]
     Active Substance: PREGABALIN
     Indication: NERVE INJURY
     Dosage: 300 MG, 3X/DAY
     Route: 048
     Dates: start: 2015
  7. LYRICA [Suspect]
     Active Substance: PREGABALIN
     Indication: FIBROMYALGIA

REACTIONS (10)
  - Musculoskeletal discomfort [Unknown]
  - Prescribed overdose [Recovered/Resolved]
  - Paraesthesia [Recovered/Resolved]
  - Limb discomfort [Unknown]
  - Insomnia [Recovered/Resolved]
  - Back disorder [Unknown]
  - Feeling abnormal [Recovered/Resolved]
  - Road traffic accident [Unknown]
  - Drug ineffective [Recovered/Resolved]
  - Activities of daily living impaired [Unknown]

NARRATIVE: CASE EVENT DATE: 2015
